FAERS Safety Report 9884653 (Version 1)
Quarter: 2014Q1

REPORT INFORMATION
  Report Type: Spontaneous
  Country: US (occurrence: None)
  Receive Date: 20140207
  Receipt Date: 20140207
  Transmission Date: 20141002
  Serious: Yes (Death)
  Sender: FDA-Public Use
  Company Number: None

PATIENT
  Age: 56 Year
  Sex: Female

DRUGS (10)
  1. LETAIRIS [Suspect]
     Indication: PULMONARY ARTERIAL HYPERTENSION
     Route: 048
     Dates: start: 201308, end: 201401
  2. DIGOXIN [Concomitant]
  3. LEVOTHYROXINE [Concomitant]
  4. LASIX [Concomitant]
  5. LISINOPRIL [Concomitant]
  6. SIMVASTATIN [Concomitant]
  7. WARFARIN [Concomitant]
  8. PROAIR [Concomitant]
  9. CARVODILOL [Concomitant]
  10. LORATADINE [Concomitant]

REACTIONS (1)
  - Death [None]
